FAERS Safety Report 7819018-1 (Version None)
Quarter: 2011Q4

REPORT INFORMATION
  Report Type: 
  Country: None (occurrence: None)
  Receive Date: 20111012
  Receipt Date: 20111007
  Transmission Date: 20120403
  Serious: Yes (Hospitalization)
  Sender: FDA-Public Use
  Company Number: 2011MA014501

PATIENT
  Age: 51 Year
  Sex: Female

DRUGS (3)
  1. OXYCODONE HCL [Suspect]
     Indication: BREAKTHROUGH PAIN
     Dosage: 5 MG; PRN; PO
     Route: 048
  2. OXYCONTIN [Suspect]
     Indication: PAIN
     Dosage: 40 MG; Q8H; PO
     Route: 048
  3. CLONAZEPAM [Suspect]
     Indication: ANXIETY
     Dosage: 0.5 MG; TID; PO
     Route: 048

REACTIONS (2)
  - DRUG INTERACTION [None]
  - SEDATION [None]
